FAERS Safety Report 5518066-4 (Version None)
Quarter: 2007Q4

REPORT INFORMATION
  Report Type: 
  Country: None (occurrence: None)
  Receive Date: 20071115
  Receipt Date: 20071107
  Transmission Date: 20080405
  Serious: Yes (Life-Threatening)
  Sender: FDA-Public Use
  Company Number: -BAXTER-2007BH008615

PATIENT
  Age: 48 Year
  Sex: Male
  Weight: 96 kg

DRUGS (2)
  1. GAMMAGARD LIQUID [Suspect]
     Indication: DRUG USE FOR UNKNOWN INDICATION
     Route: 041
     Dates: start: 20071024, end: 20071024
  2. AMOXICILLIN [Concomitant]
     Dates: start: 20071005

REACTIONS (3)
  - CHEST DISCOMFORT [None]
  - FLUSHING [None]
  - SYNCOPE VASOVAGAL [None]
